FAERS Safety Report 8995057 (Version 2)
Quarter: 2013Q1

REPORT INFORMATION
  Report Type: Spontaneous
  Country: JP (occurrence: JP)
  Receive Date: 20130102
  Receipt Date: 20130325
  Transmission Date: 20140127
  Serious: Yes (Hospitalization, Other)
  Sender: FDA-Public Use
  Company Number: JP-TEVA-378445USA

PATIENT
  Age: 72 Year
  Sex: Male

DRUGS (10)
  1. TREANDA [Suspect]
     Indication: B-CELL LYMPHOMA
     Dosage: UID/QD REGIMEN #1
     Route: 042
     Dates: start: 20110418, end: 20110419
  2. TREANDA [Suspect]
     Dosage: UID/QD REGIMEN #2
     Route: 042
     Dates: start: 20110517, end: 20110518
  3. TREANDA [Suspect]
     Dosage: UID/QD REGIMEN #3
     Route: 042
     Dates: start: 20110606, end: 20110607
  4. TREANDA [Suspect]
     Dosage: UID/QD REGIMEN #4
     Route: 042
     Dates: start: 20110913, end: 20110914
  5. TREANDA [Suspect]
     Dosage: UID/QD REGIMEN #5
     Route: 042
     Dates: start: 20111006, end: 20111007
  6. TREANDA [Suspect]
     Dosage: UID/QD REGIMEN #6
     Route: 042
     Dates: start: 20111026, end: 20111027
  7. GLIMEPIRIDE [Concomitant]
     Indication: DIABETES MELLITUS
     Dosage: 2 MILLIGRAM DAILY;
     Route: 048
  8. VOGLIBOSE [Concomitant]
     Indication: DIABETES MELLITUS
     Dosage: .6 MILLIGRAM DAILY;
     Route: 048
  9. WARFARIN POTASSIUM [Concomitant]
     Indication: ATRIAL FIBRILLATION
     Dosage: 2.5 MILLIGRAM DAILY;
     Route: 048
  10. ATORVASTATIN [Concomitant]
     Indication: DYSLIPIDAEMIA
     Dosage: 10 MILLIGRAM DAILY;
     Route: 048

REACTIONS (2)
  - Herpes zoster [Recovered/Resolved]
  - Hepatic function abnormal [Recovered/Resolved]
